FAERS Safety Report 13303887 (Version 2)
Quarter: 2017Q1

REPORT INFORMATION
  Report Type: Spontaneous
  Country: FR (occurrence: FR)
  Receive Date: 20170307
  Receipt Date: 20170314
  Transmission Date: 20170428
  Serious: Yes (Hospitalization, Other)
  Sender: FDA-Public Use
  Company Number: FR-ROCHE-1890612

PATIENT
  Age: 69 Year
  Sex: Male
  Weight: 84 kg

DRUGS (19)
  1. CRESTOR [Concomitant]
     Active Substance: ROSUVASTATIN CALCIUM
     Indication: HYPERCHOLESTEROLAEMIA
     Route: 065
  2. SYMBICORT [Concomitant]
     Active Substance: BUDESONIDE\FORMOTEROL FUMARATE DIHYDRATE
     Indication: ASTHMA
     Dosage: 2 PUFFS TWICE DAILY
     Route: 050
  3. DUOPLAVIN [Concomitant]
     Active Substance: ASPIRIN\CLOPIDOGREL
     Route: 048
     Dates: start: 20170215, end: 20170217
  4. DUOPLAVIN [Concomitant]
     Active Substance: ASPIRIN\CLOPIDOGREL
     Route: 048
     Dates: start: 20170218
  5. NATISPRAY [Concomitant]
     Active Substance: NITROGLYCERIN
  6. AIROMIR [Concomitant]
     Active Substance: ALBUTEROL SULFATE
     Route: 048
     Dates: start: 201702
  7. ROACTEMRA [Suspect]
     Active Substance: TOCILIZUMAB
     Indication: POLYMYALGIA RHEUMATICA
     Route: 058
     Dates: start: 20160406
  8. ALLOPURINOL. [Concomitant]
     Active Substance: ALLOPURINOL
     Indication: RENAL COLIC
     Route: 048
     Dates: start: 1990
  9. OMEPRAZOLE. [Concomitant]
     Active Substance: OMEPRAZOLE
     Route: 065
  10. ROACTEMRA [Suspect]
     Active Substance: TOCILIZUMAB
     Indication: VASCULITIS
     Route: 058
     Dates: start: 201612, end: 20170131
  11. CORTANCYL [Concomitant]
     Active Substance: PREDNISONE
     Indication: VASCULITIS
  12. CORTANCYL [Concomitant]
     Active Substance: PREDNISONE
     Indication: POLYMYALGIA RHEUMATICA
     Route: 048
     Dates: start: 201212
  13. METHOTREXATE. [Concomitant]
     Active Substance: METHOTREXATE
     Dosage: 1 INJECTION/WEEK
     Route: 065
  14. METOJECT [Concomitant]
     Active Substance: METHOTREXATE SODIUM
     Indication: POLYMYALGIA RHEUMATICA
     Route: 050
     Dates: start: 2014
  15. MONOTILDIEM [Concomitant]
     Active Substance: DILTIAZEM
     Indication: HYPERTENSION
     Route: 048
  16. AIROMIR [Concomitant]
     Active Substance: ALBUTEROL SULFATE
     Indication: HYPERCHOLESTEROLAEMIA
     Route: 048
     Dates: start: 1985, end: 201702
  17. LEVOTHYROX [Concomitant]
     Active Substance: LEVOTHYROXINE
     Route: 065
  18. METOJECT [Concomitant]
     Active Substance: METHOTREXATE SODIUM
     Indication: VASCULITIS
  19. XYZALL [Concomitant]
     Active Substance: LEVOCETIRIZINE DIHYDROCHLORIDE
     Route: 065

REACTIONS (5)
  - Dyspnoea [Recovered/Resolved]
  - Coronary artery stenosis [Recovered/Resolved with Sequelae]
  - Product use issue [Unknown]
  - Chest discomfort [Recovered/Resolved]
  - Off label use [Unknown]

NARRATIVE: CASE EVENT DATE: 201701
